FAERS Safety Report 7601291-6 (Version None)
Quarter: 2011Q3

REPORT INFORMATION
  Report Type: 
  Country: None (occurrence: None)
  Receive Date: 20110711
  Receipt Date: 20110628
  Transmission Date: 20111222
  Serious: Yes (Other)
  Sender: FDA-Public Use
  Company Number: US-JNJFOC-20110700870

PATIENT
  Age: 20 Year
  Sex: Female

DRUGS (3)
  1. ORAL CONTRACEPTIVE [Concomitant]
     Route: 065
  2. MERCAPTOPURINE [Concomitant]
     Indication: CROHN'S DISEASE
     Route: 065
  3. REMICADE [Suspect]
     Indication: CROHN'S DISEASE
     Route: 042
     Dates: start: 20070101, end: 20070101

REACTIONS (2)
  - VASCULITIS [None]
  - DRUG ADMINISTRATION ERROR [None]
